FAERS Safety Report 9229893 (Version 2)
Quarter: 2013Q2

REPORT INFORMATION
  Report Type: Spontaneous
  Country: US (occurrence: US)
  Receive Date: 20130415
  Receipt Date: 20130417
  Transmission Date: 20140414
  Serious: No
  Sender: FDA-Public Use
  Company Number: US-009507513-1304USA004225

PATIENT
  Age: 30 Year
  Sex: Male

DRUGS (2)
  1. SAPHRIS [Suspect]
     Dosage: 10 MG, QD
     Route: 060
     Dates: start: 2013
  2. SAPHRIS [Suspect]
     Dosage: 5 MG PER DAY
     Route: 060
     Dates: start: 2013

REACTIONS (2)
  - Akathisia [Unknown]
  - Underdose [Unknown]
